FAERS Safety Report 12934440 (Version 1)
Quarter: 2016Q4

REPORT INFORMATION
  Report Type: Report from Study
  Country: BR (occurrence: BR)
  Receive Date: 20161111
  Receipt Date: 20161111
  Transmission Date: 20170207
  Serious: Yes (Other)
  Sender: FDA-Public Use
  Company Number: PHHY2016BR153541

PATIENT
  Age: 72 Year
  Sex: Male

DRUGS (2)
  1. FORASEQ [Suspect]
     Active Substance: BUDESONIDE\FORMOTEROL FUMARATE
     Indication: PRODUCT USED FOR UNKNOWN INDICATION
     Dosage: 1 DF,(BUDESONIDE 400 UG, FORMOTEROL FUMARATE 12 UG), QD
     Route: 065
  2. ACETYLCYSTEINE. [Concomitant]
     Active Substance: ACETYLCYSTEINE
     Indication: PRODUCT USED FOR UNKNOWN INDICATION
     Dosage: 600 UNK, UNK
     Route: 065

REACTIONS (9)
  - Joint stiffness [Unknown]
  - Cataract [Unknown]
  - Dyspnoea [Unknown]
  - Chronic obstructive pulmonary disease [Unknown]
  - Blood pressure decreased [Unknown]
  - Fatigue [Unknown]
  - Glaucoma [Unknown]
  - Heart rate increased [Unknown]
  - Cardiac disorder [Unknown]
